FAERS Safety Report 4296505-7 (Version None)
Quarter: 2004Q1

REPORT INFORMATION
  Report Type: 
  Country: None (occurrence: None)
  Receive Date: 20040214
  Receipt Date: 20031215
  Transmission Date: 20041129
  Serious: Yes (Other)
  Sender: FDA-Public Use
  Company Number: 200308806

PATIENT
  Age: 23 Year
  Sex: Female

DRUGS (2)
  1. GAMMAR-P I.V. [Suspect]
     Route: 042
     Dates: start: 20030729, end: 20030826
  2. GAMMAR-P I.V. [Suspect]

REACTIONS (3)
  - CYTOMEGALOVIRUS TEST POSITIVE [None]
  - HEPATITIS B ANTIBODY POSITIVE [None]
  - SYPHILIS TEST POSITIVE [None]
